FAERS Safety Report 9043151 (Version 1)
Quarter: 2013Q1

REPORT INFORMATION
  Report Type: Report from Study
  Country: US (occurrence: US)
  Receive Date: 20130129
  Receipt Date: 20130129
  Transmission Date: 20140127
  Serious: No
  Sender: FDA-Public Use
  Company Number: US-ABBOTT-12P-163-0910602-00

PATIENT
  Age: 46 Year
  Sex: Female

DRUGS (5)
  1. HUMIRA 40 MG/0.8 ML PEN [Suspect]
     Indication: PSORIATIC ARTHROPATHY
     Dates: start: 20120219
  2. COUMADIN [Concomitant]
     Indication: INTRACARDIAC THROMBUS
  3. LISINOPRIL [Concomitant]
     Indication: HYPERTENSION
  4. TOPAMAX [Concomitant]
     Indication: MIGRAINE
     Dosage: 1 IN 1 D, IN A.M.
  5. TOPAMAX [Concomitant]
     Dosage: AT BEDTIME

REACTIONS (3)
  - Nasopharyngitis [Not Recovered/Not Resolved]
  - Pyrexia [Not Recovered/Not Resolved]
  - Malaise [Not Recovered/Not Resolved]
